FAERS Safety Report 5109798-0 (Version None)
Quarter: 2006Q3

REPORT INFORMATION
  Report Type: 
  Country: None (occurrence: None)
  Receive Date: 20060914
  Receipt Date: 20060905
  Transmission Date: 20061208
  Serious: Yes (Life-Threatening, Hospitalization)
  Sender: FDA-Public Use
  Company Number: HQWYE410507SEP06

PATIENT
  Age: 63 Year
  Sex: Female

DRUGS (17)
  1. MYLOTARG [Suspect]
     Indication: ACUTE MYELOID LEUKAEMIA RECURRENT
     Dosage: 9  MG/M2 1X PER 1 DAY, INTRAVENOUS DRIP
     Route: 041
     Dates: start: 20060718, end: 20060718
  2. MYLOTARG [Suspect]
     Indication: ACUTE MYELOID LEUKAEMIA RECURRENT
     Dosage: 9  MG/M2 1X PER 1 DAY, INTRAVENOUS DRIP
     Route: 041
     Dates: start: 20060804, end: 20060804
  3. FIRSTCIN (CEFOZOPRAN HYDROCHLORIDE) [Concomitant]
  4. TIENAM (CILASTATIN/IMIPENEM) [Concomitant]
  5. OMEGACIN (BIAPENEM) [Concomitant]
  6. FUNGUARD (MICAFUNGIN SODIUM) [Concomitant]
  7. PRODIF (FOSFLUCONAZOLE) [Concomitant]
  8. FARESTON [Concomitant]
  9. RISPERDAL [Concomitant]
  10. AKINETON [Concomitant]
  11. CYSTANIN (L-CYSTEINE ETHYL ESTER, HYDROCHLORIDE) [Concomitant]
  12. FAMOTIDINE [Concomitant]
  13. SULFAMETHOXAZOLE + TRIMETHOPRIM [Concomitant]
  14. SILECE (FLUNITRAZEPAM) [Concomitant]
  15. EVAMYL (LORMETAZEPAM) [Concomitant]
  16. HALOPERIDOL [Concomitant]
  17. MORPHINE [Concomitant]

REACTIONS (17)
  - BLAST CELL COUNT DECREASED [None]
  - BLOOD ALBUMIN DECREASED [None]
  - BLOOD LACTATE DEHYDROGENASE INCREASED [None]
  - BLOOD UREA DECREASED [None]
  - C-REACTIVE PROTEIN INCREASED [None]
  - DRUG INEFFECTIVE [None]
  - FIBRIN DEGRADATION PRODUCTS INCREASED [None]
  - HAEMATOCRIT DECREASED [None]
  - HAEMOGLOBIN DECREASED [None]
  - MALIGNANT NEOPLASM PROGRESSION [None]
  - MONOCYTE COUNT ABNORMAL [None]
  - NEUTROPHIL COUNT DECREASED [None]
  - PLATELET COUNT DECREASED [None]
  - PYREXIA [None]
  - RED BLOOD CELL COUNT DECREASED [None]
  - SEPSIS [None]
  - WHITE BLOOD CELL COUNT DECREASED [None]
